FAERS Safety Report 6606563-X (Version None)
Quarter: 2010Q1

REPORT INFORMATION
  Report Type: 
  Country: None (occurrence: None)
  Receive Date: 20100226
  Receipt Date: 20100218
  Transmission Date: 20100710
  Serious: Yes (Hospitalization)
  Sender: FDA-Public Use
  Company Number: CA-ASTRAZENECA-2010SE07607

PATIENT
  Age: 78 Year
  Sex: Female

DRUGS (2)
  1. CRESTOR [Suspect]
     Dosage: 1
     Route: 048
  2. PREVACID [Concomitant]
     Route: 048

REACTIONS (1)
  - COLITIS COLLAGENOUS [None]
